FAERS Safety Report 5622511-3 (Version None)
Quarter: 2008Q1

REPORT INFORMATION
  Report Type: 
  Country: None (occurrence: None)
  Receive Date: 20080211
  Receipt Date: 20080204
  Transmission Date: 20080703
  Serious: Yes (Other)
  Sender: FDA-Public Use
  Company Number: US-GENENTECH-255408

PATIENT
  Sex: Male
  Weight: 144 kg

DRUGS (1)
  1. RANIBIZUMAB [Suspect]
     Indication: RETINAL VEIN OCCLUSION
     Dosage: 0.05 ML, 1/MONTH
     Route: 031
     Dates: start: 20071018

REACTIONS (1)
  - RETINAL VEIN OCCLUSION [None]
